FAERS Safety Report 16153250 (Version 2)
Quarter: 2019Q2

REPORT INFORMATION
  Report Type: Report from Study
  Country: CA (occurrence: CA)
  Receive Date: 20190403
  Receipt Date: 20190405
  Transmission Date: 20190711
  Serious: Yes (Other)
  Sender: FDA-Public Use
  Company Number: CA-AMGEN-CANCT2019051690

PATIENT
  Age: 35 Year
  Sex: Female

DRUGS (2)
  1. ELAVIL [Concomitant]
     Active Substance: AMITRIPTYLINE HYDROCHLORIDE
     Indication: PRODUCT USED FOR UNKNOWN INDICATION
     Dosage: UNK
     Route: 065
     Dates: start: 201806, end: 201902
  2. AIMOVIG [Suspect]
     Active Substance: ERENUMAB-AOOE
     Indication: MIGRAINE
     Dosage: 1 DF (70 ML), UNK
     Route: 065
     Dates: start: 20190322

REACTIONS (12)
  - Memory impairment [Unknown]
  - Pain in extremity [Unknown]
  - Movement disorder [Unknown]
  - Hyperhidrosis [Unknown]
  - Fatigue [Unknown]
  - Pain [Unknown]
  - Drug ineffective [Unknown]
  - Muscle spasms [Unknown]
  - Loss of consciousness [Unknown]
  - Fear [Unknown]
  - Migraine [Recovered/Resolved]
  - Myalgia [Unknown]

NARRATIVE: CASE EVENT DATE: 201903
